FAERS Safety Report 8433285-5 (Version None)
Quarter: 2012Q2

REPORT INFORMATION
  Report Type: 
  Country: None (occurrence: None)
  Receive Date: 20120613
  Receipt Date: 20120604
  Transmission Date: 20120825
  Serious: Yes (Death, Life-Threatening, Hospitalization)
  Sender: FDA-Public Use
  Company Number: US-ROCHE-662414

PATIENT
  Sex: Male
  Weight: 85.31 kg

DRUGS (11)
  1. FOLIC ACID [Concomitant]
     Dates: start: 20090824, end: 20090911
  2. CARBOPLATIN [Suspect]
     Indication: NON-SMALL CELL LUNG CANCER
     Dosage: 6 DF, Q21D
     Route: 042
     Dates: start: 20090904, end: 20090904
  3. DURAGESIC-100 [Concomitant]
     Indication: PRODUCT USED FOR UNKNOWN INDICATION
     Dosage: UNK
  4. VITAMIN B-12 [Concomitant]
     Dates: start: 20090824, end: 20090911
  5. PEMETREXED DISODIUM [Suspect]
     Indication: NON-SMALL CELL LUNG CANCER
     Dosage: 500 MG/M2, Q21D
     Route: 042
     Dates: start: 20090904, end: 20090904
  6. MEGESTROL ACETATE [Concomitant]
     Indication: PRODUCT USED FOR UNKNOWN INDICATION
     Dosage: UNK
  7. DEXAMETHASONE [Concomitant]
     Dates: start: 20090824, end: 20090911
  8. NEXIUM [Concomitant]
  9. FLUCONAZOLE [Concomitant]
     Dates: start: 20090901, end: 20090907
  10. AVASTIN [Suspect]
     Indication: NON-SMALL CELL LUNG CANCER
     Dosage: 15 MG/M2, Q21D
     Route: 042
     Dates: start: 20090904, end: 20090904
  11. NORCO [Concomitant]
     Indication: PRODUCT USED FOR UNKNOWN INDICATION
     Dosage: UNK

REACTIONS (6)
  - INFECTIOUS PERITONITIS [None]
  - LEUKOPENIA [None]
  - THROMBOCYTOPENIA [None]
  - RESPIRATORY FAILURE [None]
  - SEPSIS [None]
  - RENAL FAILURE ACUTE [None]
